FAERS Safety Report 5474254-7 (Version None)
Quarter: 2007Q4

REPORT INFORMATION
  Report Type: 
  Country: None (occurrence: None)
  Receive Date: 20071002
  Receipt Date: 20070607
  Transmission Date: 20080405
  Serious: No
  Sender: FDA-Public Use
  Company Number: US-ASTRAZENECA-2007UW13770

PATIENT
  Age: 70 Year
  Sex: Female
  Weight: 59 kg

DRUGS (4)
  1. ARIMIDEX [Suspect]
     Indication: BREAST CANCER RECURRENT
     Route: 048
  2. COZAAR [Concomitant]
  3. MAXZIDE [Concomitant]
  4. LIPITOR [Concomitant]

REACTIONS (1)
  - PHARYNGOLARYNGEAL PAIN [None]
